FAERS Safety Report 8942121 (Version 1)
Quarter: 2012Q4

REPORT INFORMATION
  Report Type: 
  Country: CH (occurrence: CH)
  Receive Date: 20121130
  Receipt Date: 20121130
  Transmission Date: 20130627
  Serious: Yes (Hospitalization)
  Sender: FDA-Public Use
  Company Number: CH-GLAXOSMITHKLINE-B0848055A

PATIENT
  Age: 28 Year
  Sex: Female

DRUGS (2)
  1. TROBALT [Suspect]
     Indication: TEMPORAL LOBE EPILEPSY
     Dosage: 700MG per day
     Route: 048
  2. LAMICTAL [Suspect]
     Indication: TEMPORAL LOBE EPILEPSY
     Route: 065

REACTIONS (1)
  - Status epilepticus [Recovered/Resolved]
